FAERS Safety Report 14869805 (Version 1)
Quarter: 2018Q2

REPORT INFORMATION
  Report Type: Spontaneous
  Country: US (occurrence: US)
  Receive Date: 20180423
  Receipt Date: 20180423
  Transmission Date: 20180711
  Serious: Yes (Other)
  Sender: FDA-Public Use
  Company Number: None

PATIENT
  Age: 72 Year
  Sex: Female
  Weight: 50.35 kg

DRUGS (9)
  1. AMLODIPINE BESYLATE. [Concomitant]
     Active Substance: AMLODIPINE BESYLATE
  2. LATANOPROST. [Concomitant]
     Active Substance: LATANOPROST
  3. BENAZEPRIL [Concomitant]
     Active Substance: BENAZEPRIL HYDROCHLORIDE
  4. CETIRZINE [Concomitant]
  5. CALCIUM + D3 [Concomitant]
     Active Substance: CALCIUM\CHOLECALCIFEROL
  6. ASPIRIN LOW DOSE EC [Concomitant]
  7. BACLOFEN 10MG [Suspect]
     Active Substance: BACLOFEN
     Indication: MUSCLE SPASMS
     Dosage: ?          QUANTITY:30 DF DOSAGE FORM;?
     Route: 048
     Dates: start: 20180324, end: 20180325
  8. B SUPER COMPLEX [Concomitant]
  9. VITAMIN B12 [Concomitant]
     Active Substance: CYANOCOBALAMIN

REACTIONS (9)
  - Arthralgia [None]
  - Joint swelling [None]
  - Pain in extremity [None]
  - Gait disturbance [None]
  - Abdominal pain upper [None]
  - Back pain [None]
  - Asthenia [None]
  - Myalgia [None]
  - Pain [None]

NARRATIVE: CASE EVENT DATE: 20180324
